FAERS Safety Report 4891788-4 (Version None)
Quarter: 2006Q1

REPORT INFORMATION
  Report Type: 
  Country: None (occurrence: None)
  Receive Date: 20060126
  Receipt Date: 20060118
  Transmission Date: 20060701
  Serious: Yes (Death)
  Sender: FDA-Public Use
  Company Number: DE-RB-2651-2006

PATIENT
  Age: 68 Year
  Sex: Male

DRUGS (6)
  1. BUPRENORPHINE HCL [Suspect]
     Indication: DRUG USE FOR UNKNOWN INDICATION
     Dosage: 1 IN 1 HOUR
     Route: 062
  2. BENAZEPRIL HYDROCHLORIDE [Concomitant]
     Dosage: DOSE AND DATE UNKNOWN
     Route: 065
  3. BENAZEPRIL HYDROCHLORIDE [Concomitant]
     Dosage: DOSE AND DATE UNKNOWN
     Route: 065
  4. ACETYLSALICYLIC ACID [Concomitant]
     Indication: DRUG USE FOR UNKNOWN INDICATION
     Dosage: DOSE AND DATES UNKNOWN
     Route: 065
  5. DIPYRONE TAB [Concomitant]
     Indication: DRUG USE FOR UNKNOWN INDICATION
     Dosage: DOSE AND DATES UNKNOWN
     Route: 065
  6. LACTULOSE [Concomitant]
     Indication: DRUG USE FOR UNKNOWN INDICATION
     Dosage: DOSE AND DATES UNKNWON
     Route: 065

REACTIONS (3)
  - BRONCHIAL CARCINOMA [None]
  - METASTASIS [None]
  - NAUSEA [None]
